FAERS Safety Report 25417979 (Version 1)
Quarter: 2025Q2

REPORT INFORMATION
  Report Type: Spontaneous
  Country: MY (occurrence: MY)
  Receive Date: 20250610
  Receipt Date: 20250610
  Transmission Date: 20250716
  Serious: Yes (Other)
  Sender: ROCHE
  Company Number: MY-002147023-NVSC2025MY091596

PATIENT

DRUGS (1)
  1. XOLAIR [Suspect]
     Active Substance: OMALIZUMAB
     Indication: Pemphigoid
     Route: 065

REACTIONS (3)
  - Deep vein thrombosis [Unknown]
  - Neoplasm malignant [Unknown]
  - Off label use [Unknown]
